FAERS Safety Report 4848647-2 (Version None)
Quarter: 2005Q4

REPORT INFORMATION
  Report Type: 
  Country: None (occurrence: None)
  Receive Date: 20051206
  Receipt Date: 20051123
  Transmission Date: 20060501
  Serious: Yes (Hospitalization, Other)
  Sender: FDA-Public Use
  Company Number: 2005160748

PATIENT
  Age: 8 Year
  Sex: Female

DRUGS (2)
  1. ZITHROMAX [Suspect]
     Indication: TONSILLITIS
     Dosage: (DAILY), ORAL
     Route: 048
  2. PENICILLINE (BENZYLPENICILLIN SODIUM) [Suspect]
     Indication: TONSILLITIS
     Dosage: (DAILY), INTRAMUSCULAR
     Route: 030

REACTIONS (10)
  - AURICULAR SWELLING [None]
  - CROSS SENSITIVITY REACTION [None]
  - CYANOSIS [None]
  - DRUG HYPERSENSITIVITY [None]
  - ECCHYMOSIS [None]
  - EYELID OEDEMA [None]
  - FACE OEDEMA [None]
  - PALATAL DISORDER [None]
  - SKIN LESION [None]
  - SKIN NODULE [None]
